FAERS Safety Report 19148189 (Version 1)
Quarter: 2021Q2

REPORT INFORMATION
  Report Type: Spontaneous
  Country: CH (occurrence: CH)
  Receive Date: 20210416
  Receipt Date: 20210416
  Transmission Date: 20210717
  Serious: Yes (Other)
  Sender: FDA-Public Use
  Company Number: CH-009507513-2104CHE002893

PATIENT
  Age: 51 Year
  Sex: Male

DRUGS (6)
  1. EMEND [Suspect]
     Active Substance: APREPITANT
     Dosage: D1 125 MGD2 + D3 80 MG
     Route: 048
     Dates: start: 20210118, end: 20210120
  2. ALOXI [Concomitant]
     Active Substance: PALONOSETRON HYDROCHLORIDE
  3. OXALIPLATIN. [Concomitant]
     Active Substance: OXALIPLATIN
  4. LEUCOVORIN. [Concomitant]
     Active Substance: LEUCOVORIN
  5. FLUOROURACIL. [Concomitant]
     Active Substance: FLUOROURACIL
  6. DEXAMETHASONE. [Concomitant]
     Active Substance: DEXAMETHASONE

REACTIONS (1)
  - Depressed level of consciousness [Recovered/Resolved]

NARRATIVE: CASE EVENT DATE: 20210120
